FAERS Safety Report 8848200 (Version 1)
Quarter: 2012Q4

REPORT INFORMATION
  Report Type: 
  Country: US (occurrence: US)
  Receive Date: 20121018
  Receipt Date: 20121018
  Transmission Date: 20130627
  Serious: Yes (Hospitalization)
  Sender: FDA-Public Use
  Company Number: US-PFIZER INC-2012258353

PATIENT
  Age: 45 Year
  Sex: Female
  Weight: 61.2 kg

DRUGS (1)
  1. ADVIL [Suspect]
     Indication: MYALGIA
     Dosage: 400 mg  one dose (2 tablets 200mg at once)
     Route: 048
     Dates: start: 20121015

REACTIONS (2)
  - Pruritus [Unknown]
  - Swelling [Unknown]
